FAERS Safety Report 7496974-5 (Version None)
Quarter: 2011Q2

REPORT INFORMATION
  Report Type: 
  Country: None (occurrence: None)
  Receive Date: 20110523
  Receipt Date: 20110505
  Transmission Date: 20111010
  Serious: No
  Sender: FDA-Public Use
  Company Number: US-B.I. PHARMACEUTICALS,INC./RIDGEFIELD-2011-BP-12455BP

PATIENT
  Age: 83 Year
  Sex: Female

DRUGS (5)
  1. MAXZIDE [Concomitant]
     Indication: HYDROTHERAPY
  2. INDERAL [Concomitant]
     Indication: HYPERTENSION
  3. PRADAXA [Suspect]
     Dosage: 150 MG
     Route: 048
  4. MULTAQ [Concomitant]
     Indication: ATRIAL FIBRILLATION
  5. PRADAXA [Suspect]
     Indication: ATRIAL FIBRILLATION
     Dosage: 300 MG
     Route: 048
     Dates: start: 20110401

REACTIONS (3)
  - EPISTAXIS [None]
  - NASOPHARYNGITIS [None]
  - URINARY TRACT INFECTION [None]
